FAERS Safety Report 20618031 (Version 3)
Quarter: 2022Q2

REPORT INFORMATION
  Report Type: Spontaneous
  Country: US (occurrence: None)
  Receive Date: 20220321
  Receipt Date: 20220503
  Transmission Date: 20220721
  Serious: No
  Sender: FDA-Public Use
  Company Number: 2022A091161

PATIENT
  Age: 70 Year
  Sex: Male
  Weight: 87.1 kg

DRUGS (1)
  1. BYDUREON BCISE [Suspect]
     Active Substance: EXENATIDE
     Indication: Glycosylated haemoglobin increased
     Route: 058
     Dates: start: 20211110

REACTIONS (6)
  - Injection site haemorrhage [Recovered/Resolved]
  - Wrong technique in device usage process [Unknown]
  - Incorrect dose administered by device [Unknown]
  - Drug delivery system malfunction [Unknown]
  - Device leakage [Unknown]
  - Product administration error [Unknown]

NARRATIVE: CASE EVENT DATE: 20220225
